FAERS Safety Report 5606561-9 (Version None)
Quarter: 2008Q1

REPORT INFORMATION
  Report Type: 
  Country: None (occurrence: None)
  Receive Date: 20080129
  Receipt Date: 20080124
  Transmission Date: 20080703
  Serious: Yes (Hospitalization)
  Sender: FDA-Public Use
  Company Number: IT-AVENTIS-200810115EU

PATIENT
  Age: 40 Year
  Sex: Male

DRUGS (10)
  1. LASIX [Suspect]
     Indication: NEPHROTIC SYNDROME
     Route: 048
     Dates: start: 20070507, end: 20070609
  2. LASIX [Suspect]
     Route: 048
     Dates: end: 20070927
  3. LASIX [Suspect]
     Route: 048
     Dates: start: 20070928, end: 20071005
  4. LASIX [Suspect]
     Route: 048
     Dates: end: 20071010
  5. LASIX [Suspect]
     Route: 048
     Dates: start: 20071011
  6. ALDACTONE [Concomitant]
     Route: 048
  7. DELTACORTENE [Concomitant]
     Dosage: DOSE: UNK
  8. PANTORC [Concomitant]
  9. METHADONE HCL [Concomitant]
     Dosage: DOSE: UNK
  10. CANRENONE [Concomitant]
     Dosage: DOSE: UNK

REACTIONS (1)
  - RHABDOMYOLYSIS [None]
